FAERS Safety Report 10545361 (Version 4)
Quarter: 2015Q4

REPORT INFORMATION
  Report Type: Spontaneous
  Country: US (occurrence: US)
  Receive Date: 20141027
  Receipt Date: 20151211
  Transmission Date: 20160304
  Serious: Yes (Other)
  Sender: FDA-Public Use
  Company Number: US-PFIZER INC-2014290668

PATIENT
  Age: 63 Year
  Sex: Female

DRUGS (9)
  1. LEVOTHYROXINE. [Concomitant]
     Active Substance: LEVOTHYROXINE
     Dosage: 75 ?G, UNK (FOR ABOUT 3 MONTHS)
  2. LEVOTHYROXINE. [Concomitant]
     Active Substance: LEVOTHYROXINE
     Dosage: 50 ?G, 1X/DAY
     Dates: start: 20141215
  3. INLYTA [Suspect]
     Active Substance: AXITINIB
     Dosage: 5 MG, UNK
     Route: 048
     Dates: start: 201405
  4. INLYTA [Suspect]
     Active Substance: AXITINIB
     Indication: METASTATIC RENAL CELL CARCINOMA
     Dosage: 5 MG, 2X/DAY (EVERY 12 HRS)
     Route: 048
     Dates: start: 20140505, end: 20141016
  5. INLYTA [Suspect]
     Active Substance: AXITINIB
     Dosage: 1 UNK, UNK
  6. INLYTA [Suspect]
     Active Substance: AXITINIB
     Dosage: 1 MG, UNK
  7. INLYTA [Suspect]
     Active Substance: AXITINIB
     Dosage: 7 MG, UNK
     Route: 048
     Dates: start: 20140918, end: 20151127
  8. INLYTA [Suspect]
     Active Substance: AXITINIB
     Indication: NEOPLASM MALIGNANT
     Dosage: 3 MG, 2X/DAY (EVERY 12 HRS)
     Dates: start: 20141024, end: 20150106
  9. INLYTA [Suspect]
     Active Substance: AXITINIB
     Dosage: 4 MG, 2X/DAY (EVERY 12 HRS)
     Dates: start: 20150106

REACTIONS (6)
  - Feeding disorder [Recovered/Resolved]
  - Disease progression [Not Recovered/Not Resolved]
  - Metastatic renal cell carcinoma [Not Recovered/Not Resolved]
  - Weight decreased [Not Recovered/Not Resolved]
  - Oral pain [Unknown]
  - Oral pain [Recovered/Resolved]
